FAERS Safety Report 11201495 (Version 1)
Quarter: 2015Q2

REPORT INFORMATION
  Report Type: Spontaneous
  Country: US (occurrence: None)
  Receive Date: 20150617
  Receipt Date: 20150617
  Transmission Date: 20150821
  Serious: Yes (Hospitalization)
  Sender: FDA-Public Use
  Company Number: None

PATIENT
  Age: 82 Year
  Sex: Male
  Weight: 90 kg

DRUGS (2)
  1. EPTIFIBATIDE [Suspect]
     Active Substance: EPTIFIBATIDE
     Indication: CORONARY ARTERIAL STENT INSERTION
     Dates: start: 20110309, end: 20110310
  2. CLOPIDOGREL [Suspect]
     Active Substance: CLOPIDOGREL BISULFATE
     Indication: CORONARY ARTERIAL STENT INSERTION
     Route: 048
     Dates: start: 20110309, end: 20110309

REACTIONS (4)
  - Haemorrhage [None]
  - Dieulafoy^s vascular malformation [None]
  - Haematemesis [None]
  - Melaena [None]

NARRATIVE: CASE EVENT DATE: 20110310
